FAERS Safety Report 6140880-5 (Version None)
Quarter: 2009Q2

REPORT INFORMATION
  Report Type: 
  Country: None (occurrence: None)
  Receive Date: 20090401
  Receipt Date: 20090401
  Transmission Date: 20091009
  Serious: Yes (Hospitalization)
  Sender: FDA-Public Use
  Company Number: None

PATIENT
  Sex: Female
  Weight: 90 kg

DRUGS (8)
  1. CARBOPLATIN [Suspect]
     Dosage: 590MG
  2. TAXOL [Suspect]
     Dosage: 345 MG
  3. PERCOCET [Concomitant]
  4. PHENERGAN [Concomitant]
  5. PROCHLORPERAZINE [Concomitant]
  6. REGLAN [Concomitant]
  7. ZOFRAN [Concomitant]
  8. IBUPROFEN [Concomitant]

REACTIONS (6)
  - DEHYDRATION [None]
  - DIARRHOEA [None]
  - FEBRILE NEUTROPENIA [None]
  - NAUSEA [None]
  - PNEUMONIA [None]
  - VOMITING [None]
